FAERS Safety Report 18750287 (Version 2)
Quarter: 2021Q1

REPORT INFORMATION
  Report Type: Report from Study
  Country: US (occurrence: US)
  Receive Date: 20210118
  Receipt Date: 20210119
  Transmission Date: 20210419
  Serious: Yes (Other)
  Sender: FDA-Public Use
  Company Number: US-AGIOS-2101US02423

PATIENT

DRUGS (1)
  1. TIBSOVO [Suspect]
     Active Substance: IVOSIDENIB
     Indication: ACUTE MYELOID LEUKAEMIA
     Dosage: 250 MG (2 TIMES DAILY), QD
     Route: 048
     Dates: start: 20200923, end: 20210115

REACTIONS (5)
  - Blast cell count increased [Unknown]
  - Crying [Unknown]
  - Drug ineffective [Unknown]
  - Leukaemia recurrent [Unknown]
  - White blood cell count increased [Unknown]
